FAERS Safety Report 8554985-2 (Version None)
Quarter: 2012Q3

REPORT INFORMATION
  Report Type: 
  Country: None (occurrence: None)
  Receive Date: 20120731
  Receipt Date: 20120716
  Transmission Date: 20120928
  Serious: No
  Sender: FDA-Public Use
  Company Number: US-ASTRAZENECA-2012SE49819

PATIENT
  Sex: Female

DRUGS (32)
  1. SYMBICORT [Suspect]
     Dosage: 160/4.5 MCG, 2 PUFFS, BID
     Route: 055
  2. LISINOPRIL [Suspect]
     Route: 048
  3. ELAVIL [Concomitant]
     Route: 048
  4. ASPIRIN [Concomitant]
     Route: 048
  5. VITAMIN D [Concomitant]
     Route: 048
  6. VITAMIN B-12 [Concomitant]
     Route: 048
  7. GLUCOTROL XL [Concomitant]
     Route: 048
  8. VITAMIN D [Concomitant]
     Route: 048
  9. FLEXERIL [Concomitant]
     Indication: MUSCLE SPASMS
     Route: 048
  10. BACTRIM [Concomitant]
     Dosage: 800-160 MG BID
     Route: 048
  11. DIOVAN HCT [Concomitant]
     Dosage: 320-12.5 MG DAILY
     Route: 048
  12. DOXYCYCLINE HCL [Concomitant]
     Route: 048
  13. LANTUS SOLOSTAR [Concomitant]
     Indication: TYPE 2 DIABETES MELLITUS
     Dosage: 100 UNITS/ML, 20 UNITS NIGHTLY
     Route: 058
  14. MEVACOR [Concomitant]
     Route: 048
  15. ACTOS [Concomitant]
     Route: 048
  16. CELEBREX [Concomitant]
     Route: 048
  17. FLUCONAZOLE [Concomitant]
     Dosage: REPEAT 2 DAYS
     Route: 048
  18. HYZAAR [Concomitant]
     Dosage: 100-25 MG, DAILY
     Route: 048
  19. IBUPROFEN (ADVIL) [Concomitant]
     Route: 048
  20. ANUVIA [Concomitant]
     Route: 048
  21. PROVENTIL-HFA [Concomitant]
     Indication: WHEEZING
     Dosage: 90MCG/ACTUATION, 2 PUFFS, 6 HOURLY
     Route: 055
  22. FLEXERIL [Concomitant]
     Route: 048
  23. GLUCOTROL [Concomitant]
     Route: 048
  24. CYMBALTA [Concomitant]
     Route: 048
  25. NEURONTIN [Concomitant]
     Route: 048
  26. CHANTIX [Concomitant]
     Dosage: 1/2 DAILY FOR 4 DAYS, 1/2 BID FOR 3 DAYS, 1 TAB BID DAILY
     Route: 048
  27. FLUCONAZOLE [Concomitant]
     Route: 048
  28. IBUPROFEN (ADVIL) [Concomitant]
     Indication: PAIN
     Route: 048
  29. INSULIN ASPART [Concomitant]
     Dosage: 100 UNITS/ML, 10 UNITS 3 TIMES/DAY BEFORE MEALS
     Route: 058
  30. LEVEMIR [Concomitant]
     Dosage: 100 UNITS/ML, 20 UNITS NIGHTLY
     Route: 058
  31. LIPITOR [Concomitant]
     Route: 048
  32. VICTOZA [Concomitant]
     Dosage: 18 MG/3ML- 1.2MG IN TO SKIN DAILY

REACTIONS (18)
  - DIABETES MELLITUS INADEQUATE CONTROL [None]
  - NEUROPATHY PERIPHERAL [None]
  - ESSENTIAL HYPERTENSION [None]
  - SLEEP APNOEA SYNDROME [None]
  - CHRONIC OBSTRUCTIVE PULMONARY DISEASE [None]
  - DEPRESSION [None]
  - VITAMIN B12 DEFICIENCY [None]
  - BACK PAIN [None]
  - HEPATIC STEATOSIS [None]
  - SWELLING [None]
  - INSOMNIA [None]
  - BLOOD CHOLESTEROL INCREASED [None]
  - OBESITY [None]
  - DRUG HYPERSENSITIVITY [None]
  - ONYCHOMYCOSIS [None]
  - STAPHYLOCOCCAL INFECTION [None]
  - ASTHMA [None]
  - HYPERTENSION [None]
